FAERS Safety Report 20925256 (Version 1)
Quarter: 2022Q2

REPORT INFORMATION
  Report Type: Report from Study
  Country: US (occurrence: US)
  Receive Date: 20220607
  Receipt Date: 20220607
  Transmission Date: 20220721
  Serious: No
  Sender: FDA-Public Use
  Company Number: US-NOVARTISTESTPH-NVSC2022US130409

PATIENT
  Sex: Female

DRUGS (1)
  1. KISQALI [Suspect]
     Active Substance: RIBOCICLIB
     Indication: Breast cancer
     Dosage: 600 MG, BID
     Route: 048
     Dates: start: 202204

REACTIONS (5)
  - Nasopharyngitis [Unknown]
  - Upper respiratory tract infection [Unknown]
  - Epistaxis [Unknown]
  - Asthenia [Unknown]
  - White blood cell count decreased [Unknown]
